FAERS Safety Report 14134387 (Version 1)
Quarter: 2017Q4

REPORT INFORMATION
  Report Type: Spontaneous
  Country: US (occurrence: US)
  Receive Date: 20171026
  Receipt Date: 20171026
  Transmission Date: 20180321
  Serious: No
  Sender: FDA-Public Use
  Company Number: US-TESARO, INC.-US-2017TSO02876

PATIENT

DRUGS (1)
  1. ZEJULA [Suspect]
     Active Substance: NIRAPARIB
     Indication: ADVERSE DRUG REACTION
     Dosage: 300 MG, QD
     Route: 048
     Dates: start: 20170713

REACTIONS (3)
  - Feeling jittery [Unknown]
  - Product use in unapproved indication [Unknown]
  - Dyspnoea [Unknown]
